FAERS Safety Report 4566558-7 (Version None)
Quarter: 2005Q1

REPORT INFORMATION
  Report Type: 
  Country: None (occurrence: None)
  Receive Date: 20050201
  Receipt Date: 20041117
  Transmission Date: 20050727
  Serious: Yes (Other)
  Sender: FDA-Public Use
  Company Number: PHNU2004DE03897

PATIENT
  Sex: Female

DRUGS (7)
  1. CELEBREX [Concomitant]
  2. PROGYNOVA [Concomitant]
  3. SORTIS [Concomitant]
  4. VIOXX [Concomitant]
  5. ALLEGRO [Concomitant]
  6. TETHEXAL [Concomitant]
  7. CO-DIOVAN [Suspect]
     Indication: HYPERTENSION
     Dosage: UNK, UNK
     Dates: start: 20001018

REACTIONS (1)
  - TINNITUS [None]
